FAERS Safety Report 7068468-2 (Version None)
Quarter: 2010Q4

REPORT INFORMATION
  Report Type: 
  Country: None (occurrence: None)
  Receive Date: 20101028
  Receipt Date: 20101022
  Transmission Date: 20110411
  Serious: No
  Sender: FDA-Public Use
  Company Number: US-CEPHALON-2010005581

PATIENT
  Sex: Female

DRUGS (3)
  1. FENTORA [Suspect]
     Indication: COMPLEX REGIONAL PAIN SYNDROME
     Route: 002
  2. TINCTURE OF OPIUM [Concomitant]
  3. MS CONTIN [Concomitant]

REACTIONS (1)
  - DRUG PRESCRIBING ERROR [None]
